FAERS Safety Report 6241236-7 (Version None)
Quarter: 2009Q2

REPORT INFORMATION
  Report Type: 
  Country: None (occurrence: None)
  Receive Date: 20090623
  Receipt Date: 20090618
  Transmission Date: 20091009
  Serious: Yes (Hospitalization)
  Sender: FDA-Public Use
  Company Number: FR-MERCK-0906FRA00088

PATIENT
  Age: 76 Year
  Sex: Female

DRUGS (7)
  1. COZAAR [Suspect]
     Route: 048
     Dates: end: 20090414
  2. GEMCITABINE [Suspect]
     Indication: BLADDER CANCER
     Route: 042
     Dates: start: 20090130, end: 20090411
  3. CARBOPLATIN [Suspect]
     Indication: BLADDER CANCER
     Route: 042
     Dates: start: 20090130, end: 20090411
  4. ATENOLOL [Suspect]
     Route: 048
     Dates: end: 20090414
  5. NICORANDIL [Suspect]
     Route: 048
     Dates: end: 20090414
  6. ACETAMINOPHEN [Concomitant]
     Route: 048
  7. TRAMADOL HYDROCHLORIDE [Suspect]
     Route: 048
     Dates: end: 20090414

REACTIONS (3)
  - CAPILLARY LEAK SYNDROME [None]
  - GENERALISED OEDEMA [None]
  - RENAL FAILURE ACUTE [None]
